FAERS Safety Report 4863318-4 (Version None)
Quarter: 2005Q4

REPORT INFORMATION
  Report Type: 
  Country: None (occurrence: None)
  Receive Date: 20051222
  Receipt Date: 20051214
  Transmission Date: 20060501
  Serious: Yes (Other)
  Sender: FDA-Public Use
  Company Number: JP-NOVOPROD-249418

PATIENT
  Age: 75 Year
  Sex: Female

DRUGS (2)
  1. PENFILL R CHU [Suspect]
     Indication: DIABETES MELLITUS
     Dosage: 17 IU, QD
     Route: 058
     Dates: start: 20051001
  2. PENFILL R CHU [Suspect]
     Dosage: 14 IU, QD
     Dates: start: 20050101, end: 20051001

REACTIONS (1)
  - POLYARTHRITIS [None]
